FAERS Safety Report 21572518 (Version 1)
Quarter: 2022Q4

REPORT INFORMATION
  Report Type: Spontaneous
  Country: US (occurrence: None)
  Receive Date: 20221109
  Receipt Date: 20221109
  Transmission Date: 20230113
  Serious: No
  Sender: FDA-Public Use
  Company Number: 2022A348398

PATIENT
  Age: 52 Year
  Sex: Female
  Weight: 64.4 kg

DRUGS (3)
  1. BYDUREON BCISE [Suspect]
     Active Substance: EXENATIDE
     Indication: Type 2 diabetes mellitus
     Dosage: 2MG/ML ONCE A WEEK
     Route: 058
     Dates: start: 202105
  2. BYDUREON BCISE [Suspect]
     Active Substance: EXENATIDE
     Indication: Type 2 diabetes mellitus
     Dosage: 2MG/ML ONCE A WEEK
     Route: 058
     Dates: start: 2017, end: 2018
  3. BYETTA [Suspect]
     Active Substance: EXENATIDE
     Indication: Type 2 diabetes mellitus
     Dosage: UNKNOWN
     Route: 065
     Dates: start: 2010, end: 2016

REACTIONS (4)
  - Weight decreased [Unknown]
  - Insurance issue [Unknown]
  - Product dose omission issue [Unknown]
  - Wrong technique in product usage process [Unknown]

NARRATIVE: CASE EVENT DATE: 20180101
